FAERS Safety Report 5399012-3 (Version None)
Quarter: 2007Q3

REPORT INFORMATION
  Report Type: 
  Country: None (occurrence: None)
  Receive Date: 20070727
  Receipt Date: 20070717
  Transmission Date: 20080115
  Serious: Yes (Death, Hospitalization)
  Sender: FDA-Public Use
  Company Number: DE-AMGEN-UK235083

PATIENT
  Age: 66 Year
  Sex: Male

DRUGS (3)
  1. KINERET [Suspect]
     Indication: RHEUMATOID ARTHRITIS
     Route: 058
     Dates: start: 20041001, end: 20061101
  2. METHOTREXATE [Suspect]
     Route: 065
     Dates: start: 20031001
  3. LEFLUNOMIDE [Concomitant]
     Route: 065
     Dates: start: 20030401

REACTIONS (3)
  - ARTHRITIS BACTERIAL [None]
  - PNEUMONIA [None]
  - RESPIRATORY FAILURE [None]
